FAERS Safety Report 20136810 (Version 4)
Quarter: 2022Q2

REPORT INFORMATION
  Report Type: Report from Study
  Country: US (occurrence: US)
  Receive Date: 20211201
  Receipt Date: 20220420
  Transmission Date: 20220720
  Serious: No
  Sender: FDA-Public Use
  Company Number: US-NOVARTISTESTPH-NVSC2021US274871

PATIENT
  Sex: Female

DRUGS (3)
  1. ENTRESTO [Suspect]
     Active Substance: SACUBITRIL\VALSARTAN
     Indication: Product used for unknown indication
     Dosage: 1 DOSAGE FORM (49/51 MG)
     Route: 065
     Dates: start: 202108
  2. METFORMIN [Suspect]
     Active Substance: METFORMIN HYDROCHLORIDE
     Indication: Product used for unknown indication
     Dosage: UNK
     Route: 065
  3. NOVOLOG [Suspect]
     Active Substance: INSULIN ASPART
     Indication: Product used for unknown indication
     Dosage: UNK
     Route: 065

REACTIONS (14)
  - Diabetic gastroparesis [Not Recovered/Not Resolved]
  - Abdominal distension [Unknown]
  - Dysphagia [Recovering/Resolving]
  - Feeding disorder [Not Recovered/Not Resolved]
  - Emotional disorder [Recovering/Resolving]
  - Decreased appetite [Recovering/Resolving]
  - Cardiac disorder [Unknown]
  - Sinusitis [Recovering/Resolving]
  - Sunburn [Recovering/Resolving]
  - Blister [Unknown]
  - Blood glucose increased [Recovering/Resolving]
  - Nausea [Not Recovered/Not Resolved]
  - Vertigo [Recovered/Resolved]
  - Hypersensitivity [Recovering/Resolving]

NARRATIVE: CASE EVENT DATE: 20210101
